FAERS Safety Report 9074712 (Version 1)
Quarter: 2013Q1

REPORT INFORMATION
  Report Type: Report from Study
  Country: US (occurrence: US)
  Receive Date: 20130129
  Receipt Date: 20130129
  Transmission Date: 20140127
  Serious: No
  Sender: FDA-Public Use
  Company Number: US-ABBOTT-12P-163-0934466-00

PATIENT
  Age: 51 Year
  Sex: Male

DRUGS (6)
  1. HUMIRA 40 MG/0.8 ML PEN [Suspect]
     Indication: PSORIASIS
     Dates: start: 201201
  2. SIMVASTATIN [Concomitant]
     Indication: BLOOD CHOLESTEROL INCREASED
     Dosage: 10MG BY MOUTH DAILY
  3. ALLER-TEC [Concomitant]
     Indication: HYPERSENSITIVITY
     Dosage: 10MG BY MOUTH DAILY
  4. AMLODIPINE [Concomitant]
     Indication: HYPERTENSION
     Dosage: 5MG BY MOUTH DAILY
  5. FLONASE [Concomitant]
     Indication: HYPERSENSITIVITY
     Dosage: 50MCG 2 SPRAYS IN EACH NOSTRIL DAILY
  6. CYMBALTA [Concomitant]
     Indication: ANXIETY
     Dosage: 60MG DAILY BY MOUTH

REACTIONS (2)
  - Pruritus [Not Recovered/Not Resolved]
  - Rash [Not Recovered/Not Resolved]
